FAERS Safety Report 22157560 (Version 1)
Quarter: 2023Q1

REPORT INFORMATION
  Report Type: Spontaneous
  Country: US (occurrence: None)
  Receive Date: 20230330
  Receipt Date: 20230330
  Transmission Date: 20230417
  Serious: Yes (unspecified)
  Sender: FDA-Public Use
  Company Number: None

PATIENT
  Age: 42 Year
  Sex: Female
  Weight: 81.9 kg

DRUGS (2)
  1. LO LOESTRIN FE [Suspect]
     Active Substance: ETHINYL ESTRADIOL\NORETHINDRONE ACETATE
     Indication: Contraception
     Dosage: FREQUENCY : DAILY;?
     Route: 048
     Dates: start: 20230313, end: 20230316
  2. LO LOESTRIN FE [Suspect]
     Active Substance: ETHINYL ESTRADIOL\NORETHINDRONE ACETATE
     Indication: Menopausal symptoms

REACTIONS (4)
  - Therapy cessation [None]
  - Cholecystitis [None]
  - Pancreatitis [None]
  - Abdominal distension [None]

NARRATIVE: CASE EVENT DATE: 20230313
